FAERS Safety Report 10102284 (Version 2)
Quarter: 2014Q2

REPORT INFORMATION
  Report Type: Spontaneous
  Country: FR (occurrence: FR)
  Receive Date: 20140424
  Receipt Date: 20140424
  Transmission Date: 20141212
  Serious: Yes (Life-Threatening, Hospitalization, Other)
  Sender: FDA-Public Use
  Company Number: FR-ACTAVIS-2014-07093

PATIENT
  Age: 17 Year
  Sex: Female

DRUGS (3)
  1. PARACETAMOL (UNKNOWN) [Suspect]
     Indication: INTENTIONAL OVERDOSE
     Dosage: MORE THAN 10 G OR 150 MG/KG
     Route: 048
  2. ALPRAZOLAM (UNKNOWN) [Suspect]
     Indication: POISONING DELIBERATE
     Dosage: SEVERAL TABLETS
     Route: 065
  3. CEFPODOXIME (UNKNOWN) [Suspect]
     Indication: POISONING DELIBERATE
     Dosage: UNK
     Route: 065

REACTIONS (4)
  - Hepatic failure [Recovered/Resolved]
  - Renal failure acute [Recovered/Resolved]
  - Poisoning deliberate [Unknown]
  - Intentional overdose [Recovered/Resolved]
